FAERS Safety Report 18078000 (Version 1)
Quarter: 2020Q3

REPORT INFORMATION
  Report Type: Spontaneous
  Country: US (occurrence: US)
  Receive Date: 20200727
  Receipt Date: 20200727
  Transmission Date: 20201103
  Serious: No
  Sender: FDA-Public Use
  Company Number: US-SEATTLE GENETICS-2020SGN02405

PATIENT
  Sex: Female

DRUGS (4)
  1. PERCOCET [Suspect]
     Active Substance: ACETAMINOPHEN\OXYCODONE HYDROCHLORIDE
  2. HERCEPTIN [Concomitant]
     Active Substance: TRASTUZUMAB
  3. ZOMETA [Concomitant]
     Active Substance: ZOLEDRONIC ACID
  4. TUKYSA [Suspect]
     Active Substance: TUCATINIB
     Indication: BREAST CANCER FEMALE
     Dosage: 250 MG, BID

REACTIONS (6)
  - Adverse drug reaction [Unknown]
  - Pulmonary pain [Unknown]
  - Fatigue [Unknown]
  - Constipation [Unknown]
  - Bone pain [Unknown]
  - Pruritus [Unknown]
